FAERS Safety Report 25005748 (Version 1)
Quarter: 2025Q1

REPORT INFORMATION
  Report Type: Spontaneous
  Country: PH (occurrence: PH)
  Receive Date: 20250224
  Receipt Date: 20250224
  Transmission Date: 20250409
  Serious: Yes (Death)
  Sender: PFIZER
  Company Number: PH-PFIZER INC-PV202500022140

PATIENT
  Age: 37 Year
  Sex: Male

DRUGS (1)
  1. BOSULIF [Suspect]
     Active Substance: BOSUTINIB MONOHYDRATE
     Indication: Chronic myeloid leukaemia

REACTIONS (1)
  - Death [Fatal]

NARRATIVE: CASE EVENT DATE: 20250219
